FAERS Safety Report 9154658 (Version 1)
Quarter: 2013Q1

REPORT INFORMATION
  Report Type: Spontaneous
  Country: US (occurrence: US)
  Receive Date: 20130311
  Receipt Date: 20130311
  Transmission Date: 20140127
  Serious: Yes (Death, Other)
  Sender: FDA-Public Use
  Company Number: US-ELI_LILLY_AND_COMPANY-US201303002016

PATIENT
  Age: 75 Year
  Sex: Male

DRUGS (3)
  1. ALIMTA [Suspect]
     Dosage: 975 (NO UNIT)
     Route: 042
     Dates: start: 20130122
  2. AVASTIN [Concomitant]
     Dosage: 840 (NO UNIT)
     Dates: start: 20130122
  3. NEULASTA [Concomitant]
     Dosage: UNK
     Dates: start: 20130123

REACTIONS (3)
  - Death [Fatal]
  - Hip fracture [Unknown]
  - Neutropenia [Unknown]
